FAERS Safety Report 4509166-6 (Version None)
Quarter: 2004Q4

REPORT INFORMATION
  Report Type: 
  Country: None (occurrence: None)
  Receive Date: 20041025
  Receipt Date: 20030825
  Transmission Date: 20050328
  Serious: Yes (Other)
  Sender: FDA-Public Use
  Company Number: NSADSS2002028148

PATIENT
  Age: 77 Year
  Sex: Female
  Weight: 61.2356 kg

DRUGS (8)
  1. REMICADE [Suspect]
     Indication: RHEUMATOID ARTHRITIS
     Dosage: 5 MG/KG, 1 IN 1 DAY, INTRAVENOUS DRIP
     Route: 041
     Dates: start: 20020814, end: 20020814
  2. CELEBREX [Concomitant]
  3. FOLIC ACID [Concomitant]
  4. VERAPAMIL [Concomitant]
  5. CAPTOPRIL [Concomitant]
  6. CARDURA [Concomitant]
  7. MULTIVITAMIN [Concomitant]
  8. CALCIUM (CALCIUM) [Concomitant]

REACTIONS (2)
  - ANAPHYLACTIC REACTION [None]
  - CROHN'S DISEASE [None]
